FAERS Safety Report 8067393 (Version 3)
Quarter: 2013Q1

REPORT INFORMATION
  Report Type: Spontaneous
  Country: US (occurrence: US)
  Receive Date: 20110803
  Receipt Date: 20130213
  Transmission Date: 20140127
  Serious: Yes (Hospitalization)
  Sender: FDA-Public Use
  Company Number: US-GLAXOSMITHKLINE-A0782842A

PATIENT
  Age: 51 Year
  Sex: Male
  Weight: 72.7 kg

DRUGS (6)
  1. AVANDIA [Suspect]
     Indication: DIABETES MELLITUS
     Dosage: 4MG TWICE PER DAY
     Route: 048
     Dates: start: 20041102, end: 20070803
  2. ACTOS [Concomitant]
     Dates: start: 20070803
  3. JANUVIA [Concomitant]
     Dates: start: 200704
  4. TOPROL [Concomitant]
  5. LIPITOR [Concomitant]
  6. NEXIUM [Concomitant]

REACTIONS (2)
  - Angina pectoris [Unknown]
  - Myocardial ischaemia [Unknown]
